FAERS Safety Report 10418226 (Version 1)
Quarter: 2014Q3

REPORT INFORMATION
  Report Type: Spontaneous
  Country: FR (occurrence: FR)
  Receive Date: 20140829
  Receipt Date: 20140829
  Transmission Date: 20150326
  Serious: Yes (Other)
  Sender: FDA-Public Use
  Company Number: FR-SA-2014SA113914

PATIENT
  Age: 64 Year
  Sex: Female

DRUGS (3)
  1. PANTOPRAZOLE [Concomitant]
     Active Substance: PANTOPRAZOLE SODIUM
  2. ARAVA [Suspect]
     Active Substance: LEFLUNOMIDE
     Indication: RHEUMATOID ARTHRITIS
     Route: 048
     Dates: start: 2010
  3. DOLIPRANE [Concomitant]
     Active Substance: ACETAMINOPHEN

REACTIONS (1)
  - Renal failure acute [Unknown]

NARRATIVE: CASE EVENT DATE: 201408
